FAERS Safety Report 6258146-1 (Version None)
Quarter: 2009Q2

REPORT INFORMATION
  Report Type: 
  Country: None (occurrence: None)
  Receive Date: 20090630
  Receipt Date: 20080630
  Transmission Date: 20091009
  Serious: Yes (Life-Threatening, Hospitalization)
  Sender: FDA-Public Use
  Company Number: M-08-0674

PATIENT
  Age: 78 Year
  Sex: Male
  Weight: 60.782 kg

DRUGS (2)
  1. PACERONE [Suspect]
     Dosage: 100 MG, QD, PO
     Route: 048
     Dates: start: 20080101
  2. PACERONE [Suspect]
     Dosage: 200 MG, QD, PO
     Route: 048
     Dates: start: 20080429, end: 20080101

REACTIONS (5)
  - BRADYCARDIA [None]
  - CARDIOACTIVE DRUG LEVEL INCREASED [None]
  - HYPERTENSION [None]
  - POTENTIATING DRUG INTERACTION [None]
  - VOMITING [None]
